FAERS Safety Report 9378087 (Version 4)
Quarter: 2013Q3

REPORT INFORMATION
  Report Type: Report from Study
  Country: US (occurrence: US)
  Receive Date: 20130701
  Receipt Date: 20130923
  Transmission Date: 20140515
  Serious: Yes (Hospitalization)
  Sender: FDA-Public Use
  Company Number: US-GLAXOSMITHKLINE-A1029113A

PATIENT
  Age: 59 Year
  Sex: Female
  Weight: 63.3 kg

DRUGS (9)
  1. WELLBUTRIN [Suspect]
     Dosage: 150MG TWICE PER DAY
     Route: 048
     Dates: start: 20130529, end: 20130602
  2. INVESTIGATIONAL DRUG [Concomitant]
     Indication: CHRONIC OBSTRUCTIVE PULMONARY DISEASE
     Route: 048
     Dates: start: 20130528
  3. ALBUTEROL [Concomitant]
     Indication: CHRONIC OBSTRUCTIVE PULMONARY DISEASE
     Dosage: 90MCG AS REQUIRED
     Route: 055
     Dates: start: 2008
  4. SPIRIVA [Concomitant]
     Indication: CHRONIC OBSTRUCTIVE PULMONARY DISEASE
     Dosage: 18MCG PER DAY
     Route: 055
     Dates: start: 2011
  5. OMEPRAZOLE [Concomitant]
     Indication: GASTROOESOPHAGEAL REFLUX DISEASE
     Dosage: 20MG PER DAY
     Route: 048
     Dates: start: 2010
  6. TRAZODONE [Concomitant]
     Indication: INSOMNIA
     Dosage: 50MG PER DAY
     Route: 048
     Dates: start: 2009
  7. OXYCODONE + ACETAMINOPHEN [Concomitant]
     Indication: HEADACHE
     Route: 048
     Dates: start: 2010
  8. TIZANIDINE [Concomitant]
     Indication: BACK PAIN
     Dosage: 2MG TWICE PER DAY
     Route: 048
     Dates: start: 2011
  9. ATIVAN [Concomitant]
     Indication: ANXIETY
     Dosage: 180MG PER DAY
     Route: 048
     Dates: start: 2010

REACTIONS (1)
  - Supraventricular tachycardia [Recovered/Resolved]
